FAERS Safety Report 5049897-5 (Version None)
Quarter: 2006Q3

REPORT INFORMATION
  Report Type: 
  Country: None (occurrence: None)
  Receive Date: 20060706
  Receipt Date: 20060629
  Transmission Date: 20061208
  Serious: No
  Sender: FDA-Public Use
  Company Number: TAP2006Q01070

PATIENT
  Age: 42 Year
  Sex: Female
  Weight: 130 kg

DRUGS (3)
  1. PREVACID [Suspect]
     Indication: BARRETT'S OESOPHAGUS
     Dosage: 30 MG, 1 IN 1 D, PER ORAL
     Route: 048
     Dates: start: 20040101
  2. ALBUTEROL [Concomitant]
  3. THYROID TAB [Concomitant]

REACTIONS (11)
  - CONFUSIONAL STATE [None]
  - CSF OLIGOCLONAL BAND PRESENT [None]
  - CSF WHITE BLOOD CELL COUNT POSITIVE [None]
  - HYPERTENSION [None]
  - NUCLEAR MAGNETIC RESONANCE IMAGING ABNORMAL [None]
  - NUCLEAR MAGNETIC RESONANCE IMAGING BRAIN ABNORMAL [None]
  - RED BLOOD CELLS CSF POSITIVE [None]
  - SPINAL DISORDER [None]
  - VITAMIN B12 DECREASED [None]
  - VITAMIN B6 DECREASED [None]
  - VITAMIN D DECREASED [None]
